FAERS Safety Report 6687995-0 (Version None)
Quarter: 2010Q2

REPORT INFORMATION
  Report Type: 
  Country: None (occurrence: None)
  Receive Date: 20100420
  Receipt Date: 20100409
  Transmission Date: 20101027
  Serious: Yes (Death, Other)
  Sender: FDA-Public Use
  Company Number: JP-BAYER-201021917GPV

PATIENT
  Age: 50 Year
  Sex: Male

DRUGS (8)
  1. FLUDARABINE [Suspect]
     Indication: CORD BLOOD TRANSPLANT THERAPY
     Dates: start: 20080301, end: 20080101
  2. CYTARABINE [Suspect]
     Indication: CORD BLOOD TRANSPLANT THERAPY
     Dates: start: 20080301, end: 20080101
  3. HUMAN GRANULOCYTE COLONY-STIMULATING FACTOR [Concomitant]
     Indication: CORD BLOOD TRANSPLANT THERAPY
     Dosage: FROM DAY 1
     Route: 042
     Dates: start: 20080301
  4. HUMAN GRANULOCYTE COLONY-STIMULATING FACTOR [Concomitant]
     Dates: start: 20080301
  5. CYCLOSPORINE [Concomitant]
     Indication: PROPHYLAXIS AGAINST GRAFT VERSUS HOST DISEASE
     Dates: start: 20080301
  6. METHOTREXAT [Concomitant]
     Indication: PROPHYLAXIS AGAINST GRAFT VERSUS HOST DISEASE
     Dosage: SHORT-TERM
     Dates: start: 20080301
  7. HEPARIN [Concomitant]
     Indication: PROPHYLAXIS
     Dates: start: 20080301
  8. IMMUNE GLOBULIN NOS [Concomitant]
     Dosage: FROM DAY -1 TO DAY 100
     Route: 042
     Dates: start: 20080301

REACTIONS (8)
  - ACUTE GRAFT VERSUS HOST DISEASE IN SKIN [None]
  - ADENOVIRAL HAEMORRHAGIC CYSTITIS [None]
  - CYTOMEGALOVIRUS TEST POSITIVE [None]
  - FEBRILE NEUTROPENIA [None]
  - HUMAN HERPES VIRUS 6 SEROLOGY POSITIVE [None]
  - INTERSTITIAL LUNG DISEASE [None]
  - MULTI-ORGAN FAILURE [None]
  - PULMONARY ALVEOLAR HAEMORRHAGE [None]
